FAERS Safety Report 7768302-9 (Version None)
Quarter: 2011Q3

REPORT INFORMATION
  Report Type: 
  Country: None (occurrence: None)
  Receive Date: 20110922
  Receipt Date: 20110303
  Transmission Date: 20111222
  Serious: No
  Sender: FDA-Public Use
  Company Number: US-ASTRAZENECA-2011SE11008

PATIENT
  Age: 35 Year
  Sex: Female
  Weight: 108.9 kg

DRUGS (3)
  1. SEROQUEL XR [Suspect]
     Indication: BORDERLINE PERSONALITY DISORDER
     Route: 048
  2. PROZAC [Concomitant]
     Indication: BORDERLINE PERSONALITY DISORDER
  3. LITHIUM CARBONATE [Concomitant]
     Indication: BORDERLINE PERSONALITY DISORDER

REACTIONS (4)
  - MALAISE [None]
  - INSOMNIA [None]
  - ACTIVITIES OF DAILY LIVING IMPAIRED [None]
  - DRUG DOSE OMISSION [None]
